FAERS Safety Report 21738970 (Version 2)
Quarter: 2023Q4

REPORT INFORMATION
  Report Type: Spontaneous
  Country: US (occurrence: US)
  Receive Date: 20221216
  Receipt Date: 20231120
  Transmission Date: 20240110
  Serious: No
  Sender: FDA-Public Use
  Company Number: US-SA-SAC20221214001089

PATIENT
  Age: 56 Year
  Sex: Female

DRUGS (1)
  1. DUPIXENT [Suspect]
     Active Substance: DUPILUMAB
     Indication: Dermatitis atopic
     Dosage: 300 MG, QOW
     Route: 058

REACTIONS (5)
  - Nausea [Recovered/Resolved]
  - Injection site dryness [Not Recovered/Not Resolved]
  - Myalgia [Recovering/Resolving]
  - Arthralgia [Recovered/Resolved]
  - Injection site pain [Recovering/Resolving]
